FAERS Safety Report 11158154 (Version 1)
Quarter: 2015Q2

REPORT INFORMATION
  Report Type: Spontaneous
  Country: NP (occurrence: None)
  Receive Date: 20150601
  Receipt Date: 20150601
  Transmission Date: 20150821
  Serious: Yes (Other)
  Sender: FDA-Public Use
  Company Number: 2015AKN00301

PATIENT
  Age: 3 Year
  Sex: Female

DRUGS (5)
  1. RIFAMPIN (RIFAMPIN) UNKNOWN [Suspect]
     Active Substance: RIFAMPIN
     Indication: MENINGITIS TUBERCULOUS
     Route: 048
  2. ETHAMBUTOL [Suspect]
     Active Substance: ETHAMBUTOL HYDROCHLORIDE
     Indication: MENINGITIS TUBERCULOUS
     Route: 048
  3. PYRAZINAMIDE (PYRAZINAMIDE) [Suspect]
     Active Substance: PYRAZINAMIDE
     Indication: MENINGITIS TUBERCULOUS
     Route: 048
  4. ISONIAZID (ISONIAZID) [Suspect]
     Active Substance: ISONIAZID
     Indication: MENINGITIS TUBERCULOUS
     Route: 048
  5. PHENYTOIN. [Concomitant]
     Active Substance: PHENYTOIN

REACTIONS (5)
  - Tuberculoma of central nervous system [None]
  - Paradoxical drug reaction [None]
  - Loss of consciousness [None]
  - Seizure [None]
  - Tachycardia [None]
